FAERS Safety Report 7846755-5 (Version None)
Quarter: 2011Q4

REPORT INFORMATION
  Report Type: 
  Country: None (occurrence: None)
  Receive Date: 20111025
  Receipt Date: 20111018
  Transmission Date: 20120403
  Serious: Yes (Other)
  Sender: FDA-Public Use
  Company Number: PHEH2011US07128

PATIENT
  Sex: Male
  Weight: 59.1 kg

DRUGS (5)
  1. VENTOLIN [Concomitant]
  2. TYLENOL-500 [Concomitant]
  3. DARVOCET [Concomitant]
  4. VICODIN [Concomitant]
  5. AREDIA [Suspect]

REACTIONS (11)
  - MUSCLE SPASMS [None]
  - LYMPHADENOPATHY [None]
  - OSTEOARTHRITIS [None]
  - CHRONIC OBSTRUCTIVE PULMONARY DISEASE [None]
  - BRONCHITIS [None]
  - MUSCULOSKELETAL PAIN [None]
  - EMPHYSEMA [None]
  - BACK PAIN [None]
  - GASTROOESOPHAGEAL REFLUX DISEASE [None]
  - CHEST PAIN [None]
  - LUNG HYPERINFLATION [None]
